FAERS Safety Report 21418387 (Version 2)
Quarter: 2022Q4

REPORT INFORMATION
  Report Type: Report from Study
  Country: NL (occurrence: NL)
  Receive Date: 20221006
  Receipt Date: 20221014
  Transmission Date: 20230113
  Serious: Yes (Hospitalization)
  Sender: FDA-Public Use
  Company Number: NL-ABBVIE-4141625

PATIENT
  Sex: Male

DRUGS (9)
  1. CARBIDOPA\LEVODOPA [Suspect]
     Active Substance: CARBIDOPA\LEVODOPA
     Indication: Parkinson^s disease
     Dosage: MD 3.0 ML; CD 1.7 ML/H; ED 1.2 ML?REMAINS AT 16 HOURS
     Route: 050
  2. CARBIDOPA\LEVODOPA [Suspect]
     Active Substance: CARBIDOPA\LEVODOPA
     Dosage: MD 3.0 ML; CD 3.8 ML/H; ED 1.5 ML; CND 1.7 ML/H?REMAINS AT 16 HOURS
     Route: 050
  3. MAGNESIUM [Concomitant]
     Active Substance: MAGNESIUM
     Indication: Bowel movement irregularity
  4. Laxans [Concomitant]
     Indication: Bowel movement irregularity
  5. FERROUS FUMARATE [Concomitant]
     Active Substance: FERROUS FUMARATE
     Indication: Product used for unknown indication
  6. ZOPICLONE [Concomitant]
     Active Substance: ZOPICLONE
     Indication: Sleep disorder therapy
  7. POLYETHYLENE GLYCOLS [Concomitant]
     Active Substance: POLYETHYLENE GLYCOLS
     Indication: Bowel movement irregularity
  8. ZOPICLONE [Concomitant]
     Active Substance: ZOPICLONE
     Indication: Sleep disorder
  9. terra-cortil [Concomitant]
     Indication: Stoma site infection

REACTIONS (14)
  - Gastric ulcer [Recovering/Resolving]
  - Device issue [Not Recovered/Not Resolved]
  - Restlessness [Not Recovered/Not Resolved]
  - On and off phenomenon [Not Recovered/Not Resolved]
  - Stoma site infection [Recovered/Resolved]
  - Freezing phenomenon [Not Recovered/Not Resolved]
  - Dyschezia [Not Recovered/Not Resolved]
  - Hallucination [Not Recovered/Not Resolved]
  - Depressed mood [Not Recovered/Not Resolved]
  - Haemoglobin decreased [Recovering/Resolving]
  - Cognitive disorder [Not Recovered/Not Resolved]
  - Unevaluable event [Recovered/Resolved]
  - Muscle rigidity [Not Recovered/Not Resolved]
  - Stoma site pain [Not Recovered/Not Resolved]
